FAERS Safety Report 8833866 (Version 2)
Quarter: 2012Q4

REPORT INFORMATION
  Report Type: 
  Country: US (occurrence: US)
  Receive Date: 20121011
  Receipt Date: 20121025
  Transmission Date: 20130627
  Serious: Yes (Life-Threatening)
  Sender: FDA-Public Use
  Company Number: US-009507513-1210USA004327

PATIENT

DRUGS (1)
  1. TEMODAR [Suspect]
     Indication: GLIOBLASTOMA
     Dosage: 50-75 mg/m2, UNK
     Route: 048

REACTIONS (1)
  - Anaemia [Unknown]
